FAERS Safety Report 15360801 (Version 7)
Quarter: 2018Q4

REPORT INFORMATION
  Report Type: Spontaneous
  Country: PL (occurrence: PL)
  Receive Date: 20180907
  Receipt Date: 20181214
  Transmission Date: 20190204
  Serious: Yes (Hospitalization, Other)
  Sender: FDA-Public Use
  Company Number: PL-AUROBINDO-AUR-APL-2018-044986

PATIENT
  Age: 70 Year
  Sex: Male

DRUGS (20)
  1. METOPROLOL. [Interacting]
     Active Substance: METOPROLOL
     Indication: PRODUCT USED FOR UNKNOWN INDICATION
     Dosage: 100 MILLIGRAM, ONCE A DAY, 2 X 50 MG
     Route: 065
  2. METOPROLOL. [Interacting]
     Active Substance: METOPROLOL
     Dosage: 25 MILLIGRAM, ONCE A DAY, 1 X 25 MG, DOSE REDUCED
     Route: 065
  3. METOPROLOL. [Interacting]
     Active Substance: METOPROLOL
     Dosage: 50 MILLIGRAM, ONCE A DAY (1 X 25 MG, DOSE REDUCED)
     Route: 065
  4. CIPROFLOXACIN. [Interacting]
     Active Substance: CIPROFLOXACIN
     Dosage: 1000 MILLIGRAM, ONCE A DAY, 2 X 500 MG
     Route: 048
  5. THIOCTIC ACID [Concomitant]
     Active Substance: THIOCTIC ACID
     Indication: PRODUCT USED FOR UNKNOWN INDICATION
     Dosage: 600 MILLIGRAM, ONCE A DAY
     Route: 065
  6. QUETIAPINE. [Interacting]
     Active Substance: QUETIAPINE
     Indication: INITIAL INSOMNIA
  7. QUETIAPINE. [Interacting]
     Active Substance: QUETIAPINE
     Indication: ANHEDONIA
  8. QUETIAPINE. [Interacting]
     Active Substance: QUETIAPINE
     Indication: DEPRESSED MOOD
  9. CIPROFLOXACIN. [Interacting]
     Active Substance: CIPROFLOXACIN
     Indication: PROSTATITIS
     Dosage: 500 MILLIGRAM, DAILY LSTED MORE THAN ONE YEAR, THAN THE DOSE INCREASED TO 2X500 MG
     Route: 016
  10. DABIGATRAN [Concomitant]
     Active Substance: DABIGATRAN
     Indication: PRODUCT USED FOR UNKNOWN INDICATION
     Dosage: 300 MILLIGRAM, ONCE A DAY, 2 X 150 MG
     Route: 065
  11. QUETIAPINE. [Interacting]
     Active Substance: QUETIAPINE
     Indication: AFFECTIVE DISORDER
  12. DULOXETINE. [Interacting]
     Active Substance: DULOXETINE
     Indication: DEPRESSIVE SYMPTOM
     Dosage: 60 MG, QD, TAKEN IN THE MORNING
     Route: 065
  13. FLUOCINOLONE [Suspect]
     Active Substance: FLUOCINOLONE
     Indication: PRODUCT USED FOR UNKNOWN INDICATION
     Dosage: UNK UNK, UNKNOWN FREQ
     Route: 065
  14. DULOXETINE. [Interacting]
     Active Substance: DULOXETINE
     Indication: ADJUVANT THERAPY
  15. METFORMIN [Concomitant]
     Active Substance: METFORMIN HYDROCHLORIDE
     Indication: PRODUCT USED FOR UNKNOWN INDICATION
     Dosage: 2000 MILLIGRAM, ONCE A DAY, 2 X 1000 MG
     Route: 065
  16. TAMSULOSIN [Suspect]
     Active Substance: TAMSULOSIN
     Indication: BENIGN PROSTATIC HYPERPLASIA
     Dosage: 0.4 MILLIGRAM, ONCE A DAY
     Route: 065
  17. QUETIAPINE. [Interacting]
     Active Substance: QUETIAPINE
     Indication: DEPRESSIVE SYMPTOM
     Dosage: 50 MG, AT BEDTIME (BEFORE GOING TO BED)
     Route: 048
  18. QUETIAPINE. [Interacting]
     Active Substance: QUETIAPINE
     Indication: DEPRESSION
  19. DULOXETINE. [Interacting]
     Active Substance: DULOXETINE
     Indication: DIABETIC NEUROPATHY
     Dosage: 90 MILLIGRAM, ONCE A DAY DOSE INCREASED
     Route: 065
  20. DIGOXIN. [Concomitant]
     Active Substance: DIGOXIN
     Indication: PRODUCT USED FOR UNKNOWN INDICATION
     Dosage: 0.1 MG, ONCE DAILY
     Route: 065

REACTIONS (19)
  - Anxiety [Recovered/Resolved]
  - Depressed mood [Recovered/Resolved]
  - Diplopia [Recovered/Resolved]
  - Headache [Recovered/Resolved]
  - Yawning [Recovered/Resolved]
  - Prostatitis [Recovered/Resolved]
  - Toxicity to various agents [Recovered/Resolved]
  - Nausea [Recovered/Resolved]
  - Drug interaction [Recovered/Resolved]
  - Affective disorder [Recovered/Resolved]
  - Bradycardia [Recovered/Resolved]
  - Pain [Recovered/Resolved]
  - Urinary retention [Recovered/Resolved]
  - Tremor [Recovered/Resolved]
  - Anhedonia [Recovered/Resolved]
  - Dizziness [Recovered/Resolved]
  - Syncope [Recovered/Resolved]
  - Initial insomnia [Recovered/Resolved]
  - Off label use [Unknown]
